FAERS Safety Report 4344454-8 (Version None)
Quarter: 2004Q2

REPORT INFORMATION
  Report Type: 
  Country: None (occurrence: None)
  Receive Date: 20040422
  Receipt Date: 20040315
  Transmission Date: 20050107
  Serious: Yes (Death, Other)
  Sender: FDA-Public Use
  Company Number: PHBS2004SK03707

PATIENT
  Age: 14 Year
  Sex: Female

DRUGS (5)
  1. CYCLOSPORINE [Suspect]
     Indication: STEM CELL TRANSPLANT
     Route: 065
  2. CYCLOPHOSPHAMIDE [Concomitant]
  3. ALG [Concomitant]
  4. METHOTREXATE [Concomitant]
  5. PHENOBARBITAL TAB [Suspect]

REACTIONS (8)
  - GENERAL PHYSICAL HEALTH DETERIORATION [None]
  - GRAFT VERSUS HOST DISEASE [None]
  - GRAND MAL CONVULSION [None]
  - HYPERTENSION [None]
  - INFECTION [None]
  - LOSS OF CONSCIOUSNESS [None]
  - NEUROTOXICITY [None]
  - NUCLEAR MAGNETIC RESONANCE IMAGING BRAIN ABNORMAL [None]
